FAERS Safety Report 23718237 (Version 1)
Quarter: 2024Q2

REPORT INFORMATION
  Report Type: Spontaneous
  Country: JP (occurrence: JP)
  Receive Date: 20240408
  Receipt Date: 20240408
  Transmission Date: 20240716
  Serious: Yes (Hospitalization, Other)
  Sender: FDA-Public Use
  Company Number: JP-EPICPHARMA-JP-2024EPCLIT00342

PATIENT
  Age: 42 Year
  Sex: Female

DRUGS (8)
  1. GRANISETRON HYDROCHLORIDE [Suspect]
     Active Substance: GRANISETRON HYDROCHLORIDE
     Indication: Antiemetic supportive care
     Dosage: 3MG/BODY
     Route: 042
  2. DOXORUBICIN [Suspect]
     Active Substance: DOXORUBICIN
     Indication: Triple negative breast cancer
     Dosage: 60 MG/M2
     Route: 065
  3. CYCLOPHOSPHAMIDE [Suspect]
     Active Substance: CYCLOPHOSPHAMIDE
     Indication: Triple negative breast cancer
     Route: 065
  4. DEXAMETHASONE [Suspect]
     Active Substance: DEXAMETHASONE
     Indication: Antiemetic supportive care
     Dosage: 9.9MG/BODY
     Route: 042
  5. DEXAMETHASONE [Suspect]
     Active Substance: DEXAMETHASONE
     Dosage: 8MG/BODY
     Route: 048
  6. APREPITANT [Suspect]
     Active Substance: APREPITANT
     Indication: Antiemetic supportive care
     Dosage: 125MG/BODY
     Route: 065
  7. APREPITANT [Suspect]
     Active Substance: APREPITANT
     Dosage: 80MG/BODY
     Route: 048
  8. PACLITAXEL [Concomitant]
     Active Substance: PACLITAXEL
     Indication: Triple negative breast cancer
     Route: 065

REACTIONS (1)
  - Pancreatitis acute [Recovered/Resolved]
